FAERS Safety Report 8806692 (Version 1)
Quarter: 2012Q4

REPORT INFORMATION
  Report Type: Spontaneous
  Country: IT (occurrence: None)
  Receive Date: 20120919
  Receipt Date: 20120919
  Transmission Date: 20130627
  Serious: Yes (Hospitalization)
  Sender: FDA-Public Use
  Company Number: FK201202664

PATIENT
  Age: 53 Year
  Sex: Female

DRUGS (1)
  1. OXALIPLATIN [Suspect]
     Indication: COLON CANCER
     Dosage: 360 mg, Intravenous (not otherwise specified)
     Route: 042
     Dates: start: 20120710, end: 20120710

REACTIONS (2)
  - Cardio-respiratory arrest [None]
  - Respiratory failure [None]
